FAERS Safety Report 5163701-6 (Version None)
Quarter: 2006Q4

REPORT INFORMATION
  Report Type: 
  Country: None (occurrence: None)
  Receive Date: 20061204
  Receipt Date: 20010108
  Transmission Date: 20070319
  Serious: Yes (Life-Threatening)
  Sender: FDA-Public Use
  Company Number: FR-GLAXOSMITHKLINE-B0244276A

PATIENT
  Age: 8 Year

DRUGS (4)
  1. AUGMENTIN '125' [Suspect]
     Dates: start: 19990404, end: 19990406
  2. HYDREA [Suspect]
     Dates: start: 19990404, end: 19990409
  3. CLAFORAN [Suspect]
     Dates: start: 19990329, end: 19990403
  4. JOSACINE [Suspect]
     Dates: start: 19990329, end: 19990408

REACTIONS (1)
  - HAEMOLYSIS [None]
